FAERS Safety Report 9729684 (Version 2)
Quarter: 2015Q3

REPORT INFORMATION
  Report Type: Spontaneous
  Country: US (occurrence: US)
  Receive Date: 20131204
  Receipt Date: 20150804
  Transmission Date: 20151125
  Serious: No
  Sender: FDA-Public Use
  Company Number: US-GILEAD-2009-0020912

PATIENT
  Age: 61 Year
  Sex: Female

DRUGS (16)
  1. LETAIRIS [Suspect]
     Active Substance: AMBRISENTAN
     Indication: PULMONARY HYPERTENSION
     Route: 048
     Dates: start: 20090115
  2. CLONIDINE. [Concomitant]
     Active Substance: CLONIDINE
  3. NEXIUM [Concomitant]
     Active Substance: ESOMEPRAZOLE MAGNESIUM
  4. REVATIO [Concomitant]
     Active Substance: SILDENAFIL CITRATE
  5. LISINOPRIL. [Concomitant]
     Active Substance: LISINOPRIL
  6. HYDRALAZINE [Concomitant]
     Active Substance: HYDRALAZINE HYDROCHLORIDE
  7. COZAAR [Concomitant]
     Active Substance: LOSARTAN POTASSIUM
  8. METOLAZONE. [Concomitant]
     Active Substance: METOLAZONE
  9. XANAX [Concomitant]
     Active Substance: ALPRAZOLAM
  10. DARVOCET [Concomitant]
     Active Substance: ACETAMINOPHEN\PROPOXYPHENE HYDROCHLORIDE
  11. DILTIAZEM [Concomitant]
     Active Substance: DILTIAZEM
  12. ASPIRIN. [Concomitant]
     Active Substance: ASPIRIN
  13. CENTRUM SILVER [Concomitant]
     Active Substance: VITAMINS
  14. TYLENOL [Concomitant]
     Active Substance: ACETAMINOPHEN
  15. LASIX [Concomitant]
     Active Substance: FUROSEMIDE
  16. POTASSIUM CHLORIDE. [Concomitant]
     Active Substance: POTASSIUM CHLORIDE

REACTIONS (1)
  - Constipation [Not Recovered/Not Resolved]
